FAERS Safety Report 22355368 (Version 1)
Quarter: 2023Q2

REPORT INFORMATION
  Report Type: Spontaneous
  Country: US (occurrence: US)
  Receive Date: 20230523
  Receipt Date: 20230523
  Transmission Date: 20230721
  Serious: No
  Sender: FDA-Public Use
  Company Number: US-PFIZER INC-PV202300088194

PATIENT
  Age: 95 Year
  Sex: Female

DRUGS (9)
  1. AMIODARONE HYDROCHLORIDE [Suspect]
     Active Substance: AMIODARONE HYDROCHLORIDE
     Dosage: UNK(AMIODARONE IODINE TINCTURE 2 %)
  2. IODINE [Suspect]
     Active Substance: IODINE
     Dosage: UNK, (AMIODARONE IODINE TINCTURE 2 %)
  3. AMLODIPINE BESYLATE [Suspect]
     Active Substance: AMLODIPINE BESYLATE
     Dosage: 10 MG
  4. ATIVAN [Suspect]
     Active Substance: LORAZEPAM
     Dosage: 0.5 MG
  5. KEFLEX [Suspect]
     Active Substance: CEPHALEXIN
     Dosage: UNK (125 MG/5 ML SUSP 100 ML)
  6. AUGMENTIN [Suspect]
     Active Substance: AMOXICILLIN\CLAVULANATE POTASSIUM
     Dosage: UNK(125 MG/5 ML SUSP 100 ML)
  7. ZOFRAN [Suspect]
     Active Substance: ONDANSETRON HYDROCHLORIDE
     Dosage: 4 MG
  8. ENALAPRILAT [Suspect]
     Active Substance: ENALAPRILAT
     Dosage: 10 MG
  9. CODEINE [Suspect]
     Active Substance: CODEINE
     Dosage: UNK(CODEINE PHOSP POWDER 5 GM)

REACTIONS (1)
  - Hypersensitivity [Unknown]
